FAERS Safety Report 7560633-0 (Version None)
Quarter: 2011Q2

REPORT INFORMATION
  Report Type: 
  Country: None (occurrence: None)
  Receive Date: 20110614
  Receipt Date: 20110607
  Transmission Date: 20111010
  Serious: Yes (Death, Life-Threatening, Hospitalization)
  Sender: FDA-Public Use
  Company Number: 2009BI007177

PATIENT
  Age: 59 Year
  Sex: Male
  Weight: 64 kg

DRUGS (25)
  1. DEXAMETHASONE [Concomitant]
  2. PREDNISOLONE [Concomitant]
  3. CYTARABINE [Concomitant]
  4. RITUXAN [Suspect]
     Indication: FOLLICLE CENTRE LYMPHOMA, FOLLICULAR GRADE I, II, III STAGE IV
     Dosage: 250 MG/M2; IX; IV DRIP
     Route: 041
     Dates: start: 20090217, end: 20090217
  5. ANTIBIOTICS [Suspect]
     Indication: INTERSTITIAL LUNG DISEASE
  6. MS CONTIN [Concomitant]
  7. ANTIHISTAMINES [Concomitant]
  8. CLADRIBINE [Concomitant]
  9. ZEVALIN [Suspect]
     Indication: FOLLICLE CENTRE LYMPHOMA, FOLLICULAR GRADE I, II, III STAGE IV
     Dosage: 130MBQ; 1X; IV
     Route: 042
     Dates: start: 20090210, end: 20090210
  10. ITRACONAZOLE [Concomitant]
  11. ETOPOSIDE [Concomitant]
  12. RITUXAN [Suspect]
     Indication: FOLLICLE CENTRE LYMPHOMA, FOLLICULAR GRADE I, II, III STAGE IV
     Dosage: 250 MG/M2; 1X; IV DRIP
     Route: 041
     Dates: start: 20090210, end: 20090210
  13. SULFAMETHOXAZOLE [Concomitant]
  14. ACINON [Concomitant]
  15. FOY (GABEXATE MESILATE) INJECTION [Concomitant]
  16. RITUXIMAB [Concomitant]
  17. VINCRISTINE [Concomitant]
  18. MITOXANTRONE [Concomitant]
  19. ZEVALIN [Suspect]
     Indication: FOLLICLE CENTRE LYMPHOMA, FOLLICULAR GRADE I, II, III STAGE IV
     Dosage: 14.8MBQ/KG; 1X; IV
     Route: 042
     Dates: start: 20090217, end: 20090217
  20. OTHER ANALGESICS AND ANTIPYRETICS [Concomitant]
  21. CYCLOPHOSPHAMIDE [Concomitant]
  22. METHYLPREDNISOLONE [Concomitant]
  23. FLUDARABINE PHOSPHATE [Concomitant]
  24. DOXORUBICIN HCL [Concomitant]
  25. CISPLATIN [Concomitant]

REACTIONS (32)
  - INTERSTITIAL LUNG DISEASE [None]
  - DIFFUSE ALVEOLAR DAMAGE [None]
  - RENAL HYPERTROPHY [None]
  - HYPERTHERMIA [None]
  - WHITE BLOOD CELL COUNT DECREASED [None]
  - ARTERIOSCLEROSIS [None]
  - CEREBRAL ARTERY EMBOLISM [None]
  - PULMONARY FIBROSIS [None]
  - PLATELET COUNT DECREASED [None]
  - BLOOD PRESSURE DECREASED [None]
  - LYMPHADENOPATHY [None]
  - FLUID OVERLOAD [None]
  - ANAEMIA [None]
  - DIABETES INSIPIDUS [None]
  - CARDIAC FAILURE [None]
  - MYOCARDIAL INFARCTION [None]
  - OPPORTUNISTIC INFECTION [None]
  - GENERAL PHYSICAL CONDITION ABNORMAL [None]
  - RENAL ATROPHY [None]
  - RENAL INFARCT [None]
  - PULMONARY THROMBOSIS [None]
  - CEREBRAL INFARCTION [None]
  - CAROTID ARTERIOSCLEROSIS [None]
  - CONDITION AGGRAVATED [None]
  - CARDIAC HYPERTROPHY [None]
  - CHOLESTASIS [None]
  - EMBOLISM [None]
  - ACUTE RESPIRATORY DISTRESS SYNDROME [None]
  - PULMONARY HAEMORRHAGE [None]
  - PANCREATIC DISORDER [None]
  - JAUNDICE [None]
  - HERPES ZOSTER [None]
